FAERS Safety Report 14171443 (Version 3)
Quarter: 2019Q1

REPORT INFORMATION
  Report Type: Spontaneous
  Country: AT (occurrence: AT)
  Receive Date: 20171108
  Receipt Date: 20190205
  Transmission Date: 20190417
  Serious: Yes (Other)
  Sender: FDA-Public Use
  Company Number: AT-PFIZER INC-2017460222

PATIENT
  Age: 70 Year
  Sex: Male

DRUGS (8)
  1. SUTENT [Concomitant]
     Active Substance: SUNITINIB MALATE
     Dosage: 37.5 MG, CYCLIC (2/1)
     Dates: start: 201610, end: 201703
  2. DULOXETIN [Concomitant]
     Active Substance: DULOXETINE
  3. SUTENT [Concomitant]
     Active Substance: SUNITINIB MALATE
     Indication: METASTATIC RENAL CELL CARCINOMA
     Dosage: 50 MG, CYCLIC (2/1)
  4. LOPERAMID [Concomitant]
     Active Substance: LOPERAMIDE
     Dosage: UP TO 6 TIMES PER DAY
  5. TEMESTA [LORAZEPAM] [Suspect]
     Active Substance: LORAZEPAM
     Dosage: UNK
  6. TRUXAL [CHLORPROTHIXENE] [Suspect]
     Active Substance: CHLORPROTHIXENE
     Dosage: UNK
  7. SEROQUEL [Suspect]
     Active Substance: QUETIAPINE FUMARATE
     Dosage: UNK
  8. MELPERON [Concomitant]
     Active Substance: MELPERONE

REACTIONS (6)
  - Sleep disorder [Unknown]
  - Intentional overdose [Unknown]
  - Gait disturbance [Unknown]
  - Confusional state [Unknown]
  - Hallucination [Unknown]
  - Drug abuse [Unknown]

NARRATIVE: CASE EVENT DATE: 201703
